FAERS Safety Report 11222074 (Version 2)
Quarter: 2015Q3

REPORT INFORMATION
  Report Type: Spontaneous
  Country: SI (occurrence: SI)
  Receive Date: 20150626
  Receipt Date: 20150728
  Transmission Date: 20151125
  Serious: Yes (Hospitalization, Other)
  Sender: FDA-Public Use
  Company Number: SI-ACTELION-A-CH2015-119922

PATIENT
  Age: 4 Year
  Sex: Male

DRUGS (4)
  1. SILDENAFIL. [Concomitant]
     Active Substance: SILDENAFIL
  2. TRACLEER [Suspect]
     Active Substance: BOSENTAN
     Indication: PULMONARY ARTERIAL HYPERTENSION
     Dosage: 32.5 MG, BID
     Route: 048
     Dates: start: 201304
  3. EPOPROSTENOL. [Concomitant]
     Active Substance: EPOPROSTENOL
     Route: 042
  4. TRACLEER [Suspect]
     Active Substance: BOSENTAN
     Dosage: 32.5 MG, QD
     Route: 048
     Dates: start: 201303

REACTIONS (3)
  - Pulmonary arterial hypertension [Unknown]
  - Condition aggravated [Unknown]
  - Lung transplant [Unknown]
